FAERS Safety Report 23859701 (Version 1)
Quarter: 2024Q2

REPORT INFORMATION
  Report Type: Spontaneous
  Country: US (occurrence: None)
  Receive Date: 20240515
  Receipt Date: 20240515
  Transmission Date: 20240716
  Serious: No
  Sender: FDA-Public Use
  Company Number: 2024A109442

PATIENT
  Sex: Female

DRUGS (3)
  1. SAPHNELO [Suspect]
     Active Substance: ANIFROLUMAB\ANIFROLUMAB-FNIA
     Dates: start: 202312
  2. SAPHNELO [Suspect]
     Active Substance: ANIFROLUMAB\ANIFROLUMAB-FNIA
     Dates: start: 202401
  3. SAPHNELO [Suspect]
     Active Substance: ANIFROLUMAB\ANIFROLUMAB-FNIA
     Dates: start: 202402

REACTIONS (7)
  - Pruritus [Unknown]
  - Rash macular [Unknown]
  - Lymphadenopathy [Unknown]
  - Malaise [Unknown]
  - Back pain [Unknown]
  - Swelling [Unknown]
  - Herpes zoster [Unknown]
